FAERS Safety Report 11543633 (Version 3)
Quarter: 2016Q2

REPORT INFORMATION
  Report Type: Spontaneous
  Country: US (occurrence: US)
  Receive Date: 20150923
  Receipt Date: 20160504
  Transmission Date: 20160815
  Serious: Yes (Other)
  Sender: FDA-Public Use
  Company Number: US-ASTRAZENECA-2015SE88270

PATIENT
  Age: 63 Year
  Sex: Female
  Weight: 71.7 kg

DRUGS (10)
  1. TYLENOL [Concomitant]
     Active Substance: ACETAMINOPHEN
     Dosage: WITH CODEINE 300-30 MG ORAL TABLET;
  2. TUDORZA PRESSAIR [Suspect]
     Active Substance: ACLIDINIUM BROMIDE
     Indication: CHRONIC OBSTRUCTIVE PULMONARY DISEASE
     Dosage: 400 MCG 2 PUFFS TWICE DAILY
     Route: 055
     Dates: start: 2013
  3. ASMANEX [Concomitant]
     Active Substance: MOMETASONE FUROATE
     Indication: CHRONIC OBSTRUCTIVE PULMONARY DISEASE
     Route: 048
     Dates: start: 20110901
  4. DENAVIR [Concomitant]
     Active Substance: PENCICLOVIR
     Dosage: APPLY INCH AS REQUIRED
     Dates: start: 20120113
  5. VENTOLIN [Concomitant]
     Active Substance: ALBUTEROL SULFATE
     Indication: CHRONIC OBSTRUCTIVE PULMONARY DISEASE
     Dosage: EVERY 4 - 6 HOURS, 1 TO 2 PUFFS AS NEEDED
     Route: 055
     Dates: start: 2000
  6. IBUPROFEN. [Concomitant]
     Active Substance: IBUPROFEN
     Dosage: 600 MG ORAL TABLET; TAKE TABLET AS REQUIRED
  7. ASMANEX [Concomitant]
     Active Substance: MOMETASONE FUROATE
     Indication: CHRONIC OBSTRUCTIVE PULMONARY DISEASE
     Dosage: 1 PUFFS BEDTIME
  8. PROZAC [Concomitant]
     Active Substance: FLUOXETINE HYDROCHLORIDE
     Indication: DEPRESSION
     Route: 048
     Dates: start: 1980
  9. TRAZODONE [Concomitant]
     Active Substance: TRAZODONE HYDROCHLORIDE
  10. WELLBUTRIN SR [Concomitant]
     Active Substance: BUPROPION HYDROCHLORIDE
     Indication: DEPRESSION
     Route: 048
     Dates: start: 1985

REACTIONS (11)
  - Pulmonary mass [Unknown]
  - Sinusitis [Unknown]
  - Product quality issue [Unknown]
  - Dyspnoea [Unknown]
  - Panic attack [Unknown]
  - Cough [Unknown]
  - Pain [Unknown]
  - Depression [Unknown]
  - Drug dose omission [Unknown]
  - Back pain [Unknown]
  - Intentional product misuse [Unknown]

NARRATIVE: CASE EVENT DATE: 2014
